FAERS Safety Report 7200845-9 (Version None)
Quarter: 2010Q4

REPORT INFORMATION
  Report Type: 
  Country: None (occurrence: None)
  Receive Date: 20101228
  Receipt Date: 20101224
  Transmission Date: 20110411
  Serious: Yes (Other)
  Sender: FDA-Public Use
  Company Number: KR-PFIZER INC-2010174084

PATIENT

DRUGS (6)
  1. NORVASC [Suspect]
     Indication: BLOOD PRESSURE MANAGEMENT
     Dosage: 5 MG, 1X/DAY
     Route: 048
     Dates: start: 20101104, end: 20101105
  2. NORVASC [Suspect]
     Dosage: 10 MG, 2X/DAY
     Route: 048
     Dates: start: 20101106, end: 20101216
  3. CELLCEPT [Concomitant]
     Dosage: 2 DF, 2X/DAY
     Route: 048
  4. TACROLIMUS MONOHYDRATE [Concomitant]
     Dosage: AS TDM
  5. CALCORT [Concomitant]
     Dosage: 3 DF, 2X/DAY
     Route: 048
  6. CALCORT [Concomitant]
     Dosage: 3 DF, 1X/DAY
     Route: 048

REACTIONS (3)
  - INFECTION [None]
  - OVERDOSE [None]
  - PULMONARY OEDEMA [None]
